FAERS Safety Report 9782865 (Version 1)
Quarter: 2013Q4

REPORT INFORMATION
  Report Type: Spontaneous
  Country: US (occurrence: US)
  Receive Date: 20131226
  Receipt Date: 20131226
  Transmission Date: 20140711
  Serious: No
  Sender: FDA-Public Use
  Company Number: US-ABBVIE-13P-163-1056831-00

PATIENT
  Sex: Male

DRUGS (2)
  1. LUPRON DEPOT [Suspect]
     Indication: PROSTATE CANCER
     Dates: start: 201111
  2. LUPRON DEPOT [Suspect]
     Dates: start: 201110, end: 201110

REACTIONS (4)
  - Bacteraemia [Unknown]
  - Bacteraemia [Unknown]
  - Injection site abscess [Unknown]
  - Injection site abscess sterile [Unknown]
